FAERS Safety Report 6200180-1 (Version None)
Quarter: 2009Q2

REPORT INFORMATION
  Report Type: 
  Country: None (occurrence: None)
  Receive Date: 20090522
  Receipt Date: 20090515
  Transmission Date: 20091009
  Serious: Yes (Other)
  Sender: FDA-Public Use
  Company Number: SG-PFIZER INC-2009215006

PATIENT
  Age: 59 Year

DRUGS (1)
  1. CELECOXIB [Suspect]
     Indication: ARTHRITIS

REACTIONS (1)
  - DERMATITIS [None]
